FAERS Safety Report 14947244 (Version 1)
Quarter: 2018Q2

REPORT INFORMATION
  Report Type: Spontaneous
  Country: FR (occurrence: FR)
  Receive Date: 20180529
  Receipt Date: 20180529
  Transmission Date: 20180711
  Serious: Yes (Other)
  Sender: FDA-Public Use
  Company Number: FR-JNJFOC-20180536751

PATIENT
  Age: 44 Year
  Sex: Female

DRUGS (2)
  1. STELARA [Suspect]
     Active Substance: USTEKINUMAB
     Indication: CUTANEOUS LUPUS ERYTHEMATOSUS
     Route: 058
     Dates: start: 20180219
  2. CORTANCYL [Suspect]
     Active Substance: PREDNISONE
     Indication: CUTANEOUS LUPUS ERYTHEMATOSUS
     Dosage: DOSE NUMBER 60, DOSE AS MILLIGRAM.
     Route: 048

REACTIONS (3)
  - Product use in unapproved indication [Unknown]
  - Tendon rupture [Recovering/Resolving]
  - Off label use [Unknown]

NARRATIVE: CASE EVENT DATE: 20180219
